FAERS Safety Report 9237330 (Version 1)
Quarter: 2013Q2

REPORT INFORMATION
  Report Type: Spontaneous
  Country: FR (occurrence: FR)
  Receive Date: 20130417
  Receipt Date: 20130417
  Transmission Date: 20140414
  Serious: Yes (Hospitalization)
  Sender: FDA-Public Use
  Company Number: FR-ELI_LILLY_AND_COMPANY-FR201304002909

PATIENT
  Age: 85 Year
  Sex: Female
  Weight: 81.5 kg

DRUGS (10)
  1. CYMBALTA [Suspect]
     Indication: NEURALGIA
     Dosage: 30 MG, QD
     Route: 048
     Dates: start: 20121213, end: 20121230
  2. HUMALOG LISPRO [Suspect]
     Dosage: 12 IU, EACH MORNING
  3. VESICARE [Concomitant]
     Indication: RENAL FAILURE
     Dosage: 5 MG, UNKNOWN
     Dates: start: 20121213, end: 20121230
  4. HAVLANE [Concomitant]
     Indication: SLEEP DISORDER
     Dosage: 1 MG, UNKNOWN
     Dates: start: 20121213, end: 20121230
  5. LANTUS [Concomitant]
     Dosage: 40 IU, EACH EVENING
  6. NOVONORM [Concomitant]
     Dosage: 3 MG, TID
  7. APROVEL [Concomitant]
     Dosage: 300 MG, QD
  8. MODOPAR [Concomitant]
     Dosage: 62.5 MG, BID
  9. LEVOTHYROX [Concomitant]
     Dosage: 100 UG, QD
  10. SIMVASTATINE [Concomitant]
     Dosage: 20 MG, QD

REACTIONS (2)
  - Confusional state [Recovered/Resolved]
  - Blood glucose decreased [Recovered/Resolved]
